FAERS Safety Report 5846333-3 (Version None)
Quarter: 2008Q3

REPORT INFORMATION
  Report Type: 
  Country: None (occurrence: None)
  Receive Date: 20080815
  Receipt Date: 20080805
  Transmission Date: 20090109
  Serious: No
  Sender: FDA-Public Use
  Company Number: US-BAYER-200830017NA

PATIENT
  Age: 40 Year
  Sex: Female
  Weight: 133 kg

DRUGS (1)
  1. MAGNEVIST [Suspect]
     Indication: NUCLEAR MAGNETIC RESONANCE IMAGING BRAIN
     Dosage: TOTAL DAILY DOSE: 20 ML  UNIT DOSE: 20 ML
     Route: 042
     Dates: start: 20080728, end: 20080728

REACTIONS (3)
  - FEELING HOT [None]
  - NAUSEA [None]
  - THROAT IRRITATION [None]
